FAERS Safety Report 8262240-3 (Version None)
Quarter: 2012Q2

REPORT INFORMATION
  Report Type: 
  Country: None (occurrence: None)
  Receive Date: 20120405
  Receipt Date: 20120323
  Transmission Date: 20120825
  Serious: Yes (Other)
  Sender: FDA-Public Use
  Company Number: DE-MYLANLABS-2012S1006368

PATIENT
  Age: 70 Year
  Sex: Female

DRUGS (2)
  1. BISOPROLOL FUMARATE [Suspect]
     Route: 048
  2. BISOPROLOL FUMARATE [Suspect]
     Indication: TACHYCARDIA
     Route: 048
     Dates: start: 19920101

REACTIONS (4)
  - PERIPHERAL COLDNESS [None]
  - HEART RATE DECREASED [None]
  - BLOOD PRESSURE INCREASED [None]
  - HYPOAESTHESIA [None]
